FAERS Safety Report 8711056 (Version 2)
Quarter: 2013Q4

REPORT INFORMATION
  Report Type: Spontaneous
  Country: US (occurrence: US)
  Receive Date: 20120807
  Receipt Date: 20131101
  Transmission Date: 20140711
  Serious: No
  Sender: FDA-Public Use
  Company Number: US-009507513-1208USA001419

PATIENT
  Age: 6 Year
  Sex: Female

DRUGS (2)
  1. CLARITIN REDITABS [Suspect]
     Indication: HYPERSENSITIVITY
     Dosage: 10 MG, QD
     Route: 048
     Dates: start: 20120722
  2. CLARITIN REDITABS [Suspect]
     Dosage: 30 MG, ONCE
     Route: 048
     Dates: start: 20120723

REACTIONS (1)
  - Overdose [Unknown]
